FAERS Safety Report 4383912-7 (Version None)
Quarter: 2004Q2

REPORT INFORMATION
  Report Type: 
  Country: None (occurrence: None)
  Receive Date: 20040623
  Receipt Date: 20040623
  Transmission Date: 20050107
  Serious: Yes (Death)
  Sender: FDA-Public Use
  Company Number: None

PATIENT
  Age: 72 Year
  Sex: Male
  Weight: 87.9978 kg

DRUGS (8)
  1. REMICADE [Suspect]
     Indication: RHEUMATOID ARTHRITIS
     Dosage: 3MG/HR Q IV Q 8 WK
     Route: 042
     Dates: start: 20030926
  2. REMICADE [Suspect]
     Indication: RHEUMATOID ARTHRITIS
     Dosage: 3MG/HR Q IV Q 8 WK
     Route: 042
     Dates: start: 20031008
  3. REMICADE [Suspect]
     Indication: RHEUMATOID ARTHRITIS
     Dosage: 3MG/HR Q IV Q 8 WK
     Route: 042
     Dates: start: 20031229
  4. REMICADE [Suspect]
     Indication: RHEUMATOID ARTHRITIS
     Dosage: 3MG/HR Q IV Q 8 WK
     Route: 042
     Dates: start: 20040204
  5. . [Concomitant]
  6. REMICADE [Suspect]
  7. REMICADE [Suspect]
  8. REMICADE [Suspect]

REACTIONS (18)
  - ABDOMINAL PAIN [None]
  - ADRENAL INSUFFICIENCY [None]
  - CANDIDIASIS [None]
  - CARDIAC ARREST [None]
  - DISSEMINATED INTRAVASCULAR COAGULATION [None]
  - FIBRIN D DIMER INCREASED [None]
  - FLUID INTAKE REDUCED [None]
  - ILEUS [None]
  - LEUKOPENIA [None]
  - LUNG INFILTRATION [None]
  - LYMPHADENOPATHY [None]
  - MALAISE [None]
  - PANCREATITIS [None]
  - PLEURAL EFFUSION [None]
  - PNEUMONIA [None]
  - PYREXIA [None]
  - RENAL FAILURE [None]
  - TUBERCULOSIS [None]
